FAERS Safety Report 5919428-3 (Version None)
Quarter: 2008Q4

REPORT INFORMATION
  Report Type: 
  Country: None (occurrence: None)
  Receive Date: 20081015
  Receipt Date: 20081008
  Transmission Date: 20090506
  Serious: Yes (Other)
  Sender: FDA-Public Use
  Company Number: PHEH2008US04499

PATIENT
  Sex: Male

DRUGS (25)
  1. ZOMETA [Suspect]
     Indication: MULTIPLE MYELOMA
     Dosage: 4 MG IV Q4 WEEKS
     Dates: start: 20020403, end: 20021118
  2. ZOMETA [Suspect]
     Dosage: 4 MG Q MONTH
     Dates: start: 20050224, end: 20080205
  3. AREDIA [Suspect]
     Indication: MULTIPLE MYELOMA
     Dosage: 90 MG, QMO
     Dates: start: 20000207, end: 20020207
  4. AREDIA [Suspect]
     Dosage: 90 MG, QMO
     Dates: start: 20030422, end: 20050113
  5. GLUCOPHAGE [Concomitant]
     Indication: DIABETES MELLITUS
     Dosage: 500 MG 2 TABLETS Q AM
  6. GLUCOPHAGE [Concomitant]
     Dosage: 500 MG 1 TAB Q PM
  7. AVANDIA [Concomitant]
     Indication: DIABETES MELLITUS
     Dosage: 8 MG DAILY
     Dates: start: 20070501
  8. LOPRESSOR [Concomitant]
     Indication: BLOOD PRESSURE
     Dosage: 50 MG DAILY
     Dates: start: 20080601
  9. EFFEXOR [Concomitant]
     Indication: DEPRESSION
     Dosage: 75 MG 2 DAILY
  10. EFFEXOR [Concomitant]
     Indication: NEUROPATHY PERIPHERAL
  11. OXYCODONE HCL [Concomitant]
     Indication: PAIN
     Dosage: 10 MG Q 4 HR PRN
  12. OXYCONTIN [Concomitant]
     Indication: PAIN
     Dosage: 10 MG BID
     Dates: end: 20080101
  13. AMBIEN [Concomitant]
     Indication: SLEEP DISORDER
     Dosage: 5 MG HS PRN
     Dates: start: 20070101
  14. VITAMINS [Concomitant]
     Dosage: ONE DAILY
     Dates: start: 20061201
  15. ATIVAN [Concomitant]
     Indication: SLEEP DISORDER
     Dosage: 1 MG HS PRN
     Dates: end: 20070101
  16. DOXORUBICIN HCL [Concomitant]
     Dosage: 19 MG/D X 4 DAYS
     Dates: start: 20000131, end: 20000303
  17. VINCRISTINE [Concomitant]
     Dosage: 0.4 MG/D X 4 DAYS Q 4 WEEKS
     Dates: start: 20000131, end: 20000303
  18. DEXAMETHASONE [Concomitant]
     Dosage: 40 MG X 4 DAYS
     Dates: start: 20000131, end: 20000303
  19. DEXAMETHASONE [Concomitant]
     Dosage: TAPER
     Dates: start: 20000320, end: 20000324
  20. THALIDOMIDE [Concomitant]
     Dosage: 400 MG DAILY
     Dates: start: 20000609, end: 20040218
  21. THALIDOMIDE [Concomitant]
     Dosage: 300 MG DAILY
     Dates: start: 20040218, end: 20040317
  22. THALIDOMIDE [Concomitant]
     Dosage: 200 MG DAILY
     Dates: start: 20040317, end: 20040623
  23. THALIDOMIDE [Concomitant]
     Dosage: 150 MG DAILY
     Dates: start: 20040623, end: 20050324
  24. THALIDOMIDE [Concomitant]
     Dosage: 200 MG DAILY
     Dates: start: 20050324, end: 20050617
  25. THALIDOMIDE [Concomitant]
     Dosage: 150 MG DAILY TAPER OFF
     Dates: start: 20050617, end: 20051005

REACTIONS (5)
  - BONE DISORDER [None]
  - LOOSE TOOTH [None]
  - OSTEONECROSIS [None]
  - TOOTH DISORDER [None]
  - TOOTH EXTRACTION [None]
